FAERS Safety Report 20825369 (Version 1)
Quarter: 2022Q2

REPORT INFORMATION
  Report Type: Other
  Country: GB (occurrence: GB)
  Receive Date: 20220513
  Receipt Date: 20220513
  Transmission Date: 20220721
  Serious: Yes (Other)
  Sender: FDA-Public Use
  Company Number: GB-MHRA-MED-202205031348142380-XYLHQ

PATIENT

DRUGS (2)
  1. HYDROXYCHLOROQUINE [Suspect]
     Active Substance: HYDROXYCHLOROQUINE
     Indication: Rheumatoid arthritis
     Dosage: 200 MILLIGRAM, BID IN MORNING AND EVENING
     Route: 065
     Dates: start: 202202, end: 20220503
  2. METHOTREXATE [Concomitant]
     Active Substance: METHOTREXATE
     Indication: Product used for unknown indication
     Dosage: 20 MILLIGRAM
     Route: 065

REACTIONS (3)
  - Night sweats [Not Recovered/Not Resolved]
  - Skin discolouration [Unknown]
  - Mood swings [Unknown]

NARRATIVE: CASE EVENT DATE: 20220210
